FAERS Safety Report 9204916 (Version 1)
Quarter: 2013Q2

REPORT INFORMATION
  Report Type: Spontaneous
  Country: US (occurrence: None)
  Receive Date: 20130401
  Receipt Date: 20130401
  Transmission Date: 20140414
  Serious: Yes (Life-Threatening, Hospitalization)
  Sender: FDA-Public Use
  Company Number: None

PATIENT
  Age: 27 Year
  Sex: Male
  Weight: 106.8 kg

DRUGS (2)
  1. IOPROMIDE [Suspect]
     Dosage: ONCE IV
     Route: 042
     Dates: start: 20120927, end: 20120927
  2. BARIUM SULFATE [Suspect]
     Dosage: ONCE PO
     Route: 048
     Dates: start: 20120927, end: 20120927

REACTIONS (1)
  - Anaphylactic reaction [None]
